FAERS Safety Report 24208884 (Version 1)
Quarter: 2024Q3

REPORT INFORMATION
  Report Type: Spontaneous
  Country: US (occurrence: None)
  Receive Date: 20240813
  Receipt Date: 20240813
  Transmission Date: 20241017
  Serious: No
  Sender: Public
  Company Number: None

PATIENT
  Age: 65 Year
  Sex: Male

DRUGS (13)
  1. PURIFIED CORTROPHIN GEL [Suspect]
     Active Substance: CORTICOTROPIN
     Indication: Nephrotic syndrome
     Dosage: FREQUENCY : DAILY;?DOSE: 80 U/ML
     Route: 058
     Dates: start: 20240712, end: 20240812
  2. ADMELOG [Concomitant]
     Active Substance: INSULIN LISPRO
  3. SOLOSTAR [Concomitant]
     Active Substance: DEVICE
  4. SACCHAROMYCES CEREVISIAE [Concomitant]
     Active Substance: SACCHAROMYCES CEREVISIAE
  5. GABAPENTIN [Concomitant]
  6. LYUMJEV KWIKPEN [Concomitant]
     Active Substance: INSULIN LISPRO
  7. VALSARTAN [Concomitant]
     Active Substance: VALSARTAN
  8. ASPIRIN [Concomitant]
  9. ATORVASTATIN [Concomitant]
  10. FLONASE ALLLGY [Concomitant]
  11. ONE TOUCH ULTRA BLUE TEST [Concomitant]
  12. TAMSULOSIN [Concomitant]
  13. METOPROLOL ER SUCCINATE [Concomitant]

REACTIONS (1)
  - Peripheral swelling [None]

NARRATIVE: CASE EVENT DATE: 20240812
